FAERS Safety Report 10312735 (Version 1)
Quarter: 2014Q3

REPORT INFORMATION
  Report Type: Spontaneous
  Country: US (occurrence: None)
  Receive Date: 20140717
  Receipt Date: 20140717
  Transmission Date: 20150326
  Serious: Yes (Other)
  Sender: FDA-Public Use
  Company Number: None

PATIENT
  Age: 25 Year
  Sex: Female
  Weight: 59.88 kg

DRUGS (3)
  1. SOMA [Suspect]
     Active Substance: CARISOPRODOL
     Indication: MUSCLE STRAIN
     Dosage: 1 PILL  ONCE DAILY TAKEN BY MOUTH
     Route: 048
  2. SOMA [Suspect]
     Active Substance: CARISOPRODOL
     Indication: NECK PAIN
     Dosage: 1 PILL  ONCE DAILY TAKEN BY MOUTH
     Route: 048
  3. SOMA [Suspect]
     Active Substance: CARISOPRODOL
     Indication: MUSCLE SPASMS
     Dosage: 1 PILL  ONCE DAILY TAKEN BY MOUTH
     Route: 048

REACTIONS (5)
  - Somnolence [None]
  - Depressed mood [None]
  - Anxiety [None]
  - Quality of life decreased [None]
  - Dysphoria [None]

NARRATIVE: CASE EVENT DATE: 20140713
